FAERS Safety Report 5943153-6 (Version None)
Quarter: 2008Q4

REPORT INFORMATION
  Report Type: 
  Country: None (occurrence: None)
  Receive Date: 20081106
  Receipt Date: 20081030
  Transmission Date: 20090506
  Serious: Yes (Death, Congenital Anomaly)
  Sender: FDA-Public Use
  Company Number: A0671310A

PATIENT
  Sex: Male

DRUGS (3)
  1. PAXIL [Suspect]
     Indication: DEPRESSION
     Dosage: 20MG IN THE MORNING
     Dates: start: 19991005
  2. PAXIL CR [Suspect]
     Indication: DEPRESSION
     Dosage: 37.5MG IN THE MORNING
     Dates: start: 20040511
  3. AMOXICILLIN [Concomitant]
     Dates: start: 20021220

REACTIONS (7)
  - CONGENITAL CARDIOVASCULAR ANOMALY [None]
  - DEXTROCARDIA [None]
  - DRUG EXPOSURE DURING PREGNANCY [None]
  - FALLOT'S TETRALOGY [None]
  - PROCEDURAL COMPLICATION [None]
  - TRANSPOSITION OF THE GREAT VESSELS [None]
  - VENTRICULAR SEPTAL DEFECT [None]
